FAERS Safety Report 8623454-3 (Version None)
Quarter: 2012Q3

REPORT INFORMATION
  Report Type: 
  Country: None (occurrence: None)
  Receive Date: 20120824
  Receipt Date: 20120824
  Transmission Date: 20120928
  Serious: No
  Sender: FDA-Public Use
  Company Number: None

PATIENT
  Age: 48 Year
  Sex: Female
  Weight: 104.3273 kg

DRUGS (1)
  1. LAMOTRIGINE [Suspect]
     Indication: MOOD SWINGS
     Dosage: QD ORAL
     Route: 048
     Dates: start: 20120227, end: 20120302

REACTIONS (4)
  - INFLUENZA LIKE ILLNESS [None]
  - PAIN [None]
  - CHILLS [None]
  - RASH [None]
